FAERS Safety Report 5365418-1 (Version None)
Quarter: 2007Q2

REPORT INFORMATION
  Report Type: 
  Country: None (occurrence: None)
  Receive Date: 20070621
  Receipt Date: 20070615
  Transmission Date: 20071010
  Serious: Yes (Life-Threatening, Hospitalization, Disabling)
  Sender: FDA-Public Use
  Company Number: FR-ELI_LILLY_AND_COMPANY-FR200704005870

PATIENT
  Age: 59 Year
  Sex: Female
  Weight: 64 kg

DRUGS (3)
  1. TAXOTERE [Concomitant]
     Indication: BREAST CANCER METASTATIC
     Dosage: UNK, OTHER
     Route: 042
     Dates: start: 20061108, end: 20070117
  2. GRANOCYTE [Concomitant]
     Dosage: 1 MG, OTHER
     Route: 058
  3. GEMZAR [Suspect]
     Indication: BREAST CANCER METASTATIC
     Dosage: 900 MG/M2, OTHER
     Route: 042
     Dates: start: 20061108

REACTIONS (10)
  - ANAEMIA [None]
  - CHOLESTASIS [None]
  - DERMATITIS BULLOUS [None]
  - GENERAL PHYSICAL HEALTH DETERIORATION [None]
  - GENERALISED OEDEMA [None]
  - NEUTROPENIA [None]
  - PALMAR-PLANTAR ERYTHRODYSAESTHESIA SYNDROME [None]
  - STAPHYLOCOCCAL BACTERAEMIA [None]
  - THROMBOCYTOPENIA [None]
  - TUMOUR MARKER INCREASED [None]
